FAERS Safety Report 19069360 (Version 1)
Quarter: 2021Q1

REPORT INFORMATION
  Report Type: Spontaneous
  Country: US (occurrence: US)
  Receive Date: 20210329
  Receipt Date: 20210329
  Transmission Date: 20210420
  Serious: Yes (Life-Threatening, Hospitalization)
  Sender: FDA-Public Use
  Company Number: None

PATIENT
  Age: 18 Year
  Sex: Female
  Weight: 54.4 kg

DRUGS (2)
  1. MIFEPRISTONE [Suspect]
     Active Substance: MIFEPRISTONE
     Indication: ABORTION INDUCED
     Dosage: ?          OTHER FREQUENCY:ONCE;?
     Route: 048
     Dates: start: 20210312, end: 20210312
  2. MISOPROSTOL. [Suspect]
     Active Substance: MISOPROSTOL
     Dates: start: 20210313, end: 20210313

REACTIONS (8)
  - Pyrexia [None]
  - Abdominal pain [None]
  - Abortion [None]
  - Sepsis [None]
  - Haemoglobin decreased [None]
  - Vaginal haemorrhage [None]
  - Blood lactic acid increased [None]
  - Chlamydia test positive [None]

NARRATIVE: CASE EVENT DATE: 20210327
